FAERS Safety Report 6043613-6 (Version None)
Quarter: 2009Q1

REPORT INFORMATION
  Report Type: 
  Country: None (occurrence: None)
  Receive Date: 20090115
  Receipt Date: 20071101
  Transmission Date: 20090719
  Serious: Yes (Other)
  Sender: FDA-Public Use
  Company Number: 6047955

PATIENT
  Age: 1 Day
  Sex: 0

DRUGS (5)
  1. CONCOR                    (SISOPROLOL PUMARATE) [Suspect]
     Indication: HYPERTENSION
     Dosage: 5 MG (5 MG, 1 IN 1 D)   TRANSPLACENTAL
     Route: 064
  2. ZURCAL (TABLET) (PANTOPRAZOLE) [Suspect]
     Indication: DRUG USE FOR UNKNOWN INDICATION
     Dosage: (ON DEMAND); TRANSPLACENTAL
     Route: 064
  3. AMITRIPTYLINE HYDROCHLORIDE [Suspect]
     Indication: DEPRESSION
     Dosage: 25 MG (25 MG,1 IN 1 D) TRANSPLACENTAL;  TAPERING OFF  TRANSPLACENTAL
     Route: 064
     Dates: start: 20080101, end: 20080601
  4. AMITRIPTYLINE HYDROCHLORIDE [Suspect]
     Indication: DEPRESSION
     Dosage: 25 MG (25 MG,1 IN 1 D) TRANSPLACENTAL;  TAPERING OFF  TRANSPLACENTAL
     Route: 064
     Dates: end: 20080601
  5. LORAZEPAM [Suspect]
     Indication: DEPRESSION
     Dosage: 2 MG (2 MG, 1 IN 1 D) TRANSPLACENTAL;  1,5 MG'(1.5 MG, 1 IN 1 D)  TRANSPLACENTAL
     Route: 064

REACTIONS (3)
  - CAESAREAN SECTION [None]
  - FOETAL GROWTH RETARDATION [None]
  - MATERNAL DRUGS AFFECTING FOETUS [None]
